FAERS Safety Report 13619235 (Version 1)
Quarter: 2017Q2

REPORT INFORMATION
  Report Type: Spontaneous
  Country: US (occurrence: US)
  Receive Date: 20170606
  Receipt Date: 20170606
  Transmission Date: 20170830
  Serious: No
  Sender: FDA-Public Use
  Company Number: US-AMGEN-USASP2016111425

PATIENT
  Age: 84 Year
  Sex: Female
  Weight: 63.39 kg

DRUGS (1)
  1. PROCRIT [Suspect]
     Active Substance: ERYTHROPOIETIN
     Indication: NEPHROGENIC ANAEMIA
     Dosage: 10000 UNIT, Q6WK (EVERY 6 WEEKS)
     Route: 058
     Dates: start: 2016, end: 201607

REACTIONS (4)
  - Drug hypersensitivity [Unknown]
  - Injection site rash [Unknown]
  - Haemoglobin decreased [Unknown]
  - Rash pruritic [Recovering/Resolving]

NARRATIVE: CASE EVENT DATE: 2016
